FAERS Safety Report 25749910 (Version 1)
Quarter: 2025Q3

REPORT INFORMATION
  Report Type: Report from Study
  Country: US (occurrence: US)
  Receive Date: 20250902
  Receipt Date: 20250902
  Transmission Date: 20251021
  Serious: Yes (Hospitalization, Other)
  Sender: TAKEDA
  Company Number: US-TAKEDA-2025TUS065906

PATIENT
  Sex: Female
  Weight: 54.42 kg

DRUGS (11)
  1. TEDUGLUTIDE [Suspect]
     Active Substance: TEDUGLUTIDE
     Indication: Short-bowel syndrome
     Dosage: 2.6 MILLIGRAM, QD
  2. TEDUGLUTIDE [Suspect]
     Active Substance: TEDUGLUTIDE
  3. TEDUGLUTIDE [Suspect]
     Active Substance: TEDUGLUTIDE
  4. TEDUGLUTIDE [Suspect]
     Active Substance: TEDUGLUTIDE
  5. TYLENOL [Concomitant]
     Active Substance: ACETAMINOPHEN
  6. TIROSINT [Concomitant]
     Active Substance: LEVOTHYROXINE SODIUM
  7. FAMOTIDINE [Concomitant]
     Active Substance: FAMOTIDINE
  8. ANASTROZOLE [Concomitant]
     Active Substance: ANASTROZOLE
  9. LEVOTHYROXINE SODIUM [Concomitant]
     Active Substance: LEVOTHYROXINE SODIUM
  10. LORAZEPAM [Concomitant]
     Active Substance: LORAZEPAM
  11. ATIVAN [Concomitant]
     Active Substance: LORAZEPAM

REACTIONS (4)
  - Sepsis [Unknown]
  - Stoma site discharge [Not Recovered/Not Resolved]
  - Stress [Not Recovered/Not Resolved]
  - Stoma site ulcer [Not Recovered/Not Resolved]
